FAERS Safety Report 21351472 (Version 1)
Quarter: 2022Q3

REPORT INFORMATION
  Report Type: Spontaneous
  Country: US (occurrence: None)
  Receive Date: 20220919
  Receipt Date: 20220919
  Transmission Date: 20221027
  Serious: No
  Sender: FDA-Public Use
  Company Number: 2022A311732

PATIENT
  Sex: Female
  Weight: 78 kg

DRUGS (1)
  1. BREZTRI [Suspect]
     Active Substance: BUDESONIDE\FORMOTEROL\GLYCOPYRROLATE
     Indication: Chronic obstructive pulmonary disease
     Dosage: AS REQUIRED
     Route: 055

REACTIONS (3)
  - Mouth ulceration [Unknown]
  - Gastric ulcer [Unknown]
  - Pharyngeal ulceration [Unknown]
